FAERS Safety Report 9503747 (Version 1)
Quarter: 2013Q1

REPORT INFORMATION
  Report Type: Spontaneous
  Country: US (occurrence: None)
  Receive Date: 20130107
  Receipt Date: 20130107
  Transmission Date: 20140127
  Serious: No
  Sender: FDA-Public Use
  Company Number: PHEH2012US019971

PATIENT
  Age: 42 Year
  Sex: Female

DRUGS (8)
  1. GILENYA [Suspect]
     Indication: MULTIPLE SCLEROSIS
     Route: 048
     Dates: start: 20110818
  2. FOLIC ACID (FOLIC ACID) [Concomitant]
  3. CYMBALTA (DULOXETINE HYDROCHLORIDE) [Concomitant]
  4. BACLOFEN (BACLOFEN) [Concomitant]
  5. GABAPENTIN (GABAPENTIN) [Concomitant]
  6. DIAZEPAM (DIAZEPAM) [Concomitant]
  7. VITAMIN D3 (COLECALCIFEROL) [Concomitant]
  8. VITAMIN B COMPLEX (CALCIUM PANTOTHENATE, NICOTINAMIDE, PYRIDOXINE HYDROCHLORIDE, RIBOFLAVIN, THIAMINE HYDROCHLORIDE) [Concomitant]

REACTIONS (1)
  - Insomnia [None]
